FAERS Safety Report 5388920-5 (Version None)
Quarter: 2007Q3

REPORT INFORMATION
  Report Type: 
  Country: None (occurrence: None)
  Receive Date: 20070713
  Receipt Date: 20070713
  Transmission Date: 20080115
  Serious: Yes (Disabling, Other)
  Sender: FDA-Public Use
  Company Number: None

PATIENT
  Sex: Male
  Weight: 72.5755 kg

DRUGS (1)
  1. ULTRAM [Suspect]
     Dosage: 1-2 PO QID PRN PAIN MAX 8/DAY
     Route: 048

REACTIONS (2)
  - PRURITUS [None]
  - URTICARIA [None]
